FAERS Safety Report 6769357-0 (Version None)
Quarter: 2010Q2

REPORT INFORMATION
  Report Type: 
  Country: None (occurrence: None)
  Receive Date: 20100607
  Receipt Date: 20100525
  Transmission Date: 20101027
  Serious: Yes (Other)
  Sender: FDA-Public Use
  Company Number: B0658128A

PATIENT
  Age: 4 Year
  Sex: Female

DRUGS (5)
  1. FLUTICASONE PROPIONATE [Suspect]
     Indication: ASTHMA
     Dosage: 250 MCG/ TWICE PER DAY / INHALED
     Dates: start: 20050901
  2. PREDNISOLONE [Suspect]
     Indication: ASTHMA
  3. ALBUTEROL SULFATE AUTOHALER [Concomitant]
  4. CORTICOSTEROID [Concomitant]
  5. MONTELUKAST SODIUM [Concomitant]

REACTIONS (7)
  - ADRENAL SUPPRESSION [None]
  - ASTHENIA [None]
  - BLOOD CORTICOTROPHIN INCREASED [None]
  - BLOOD CORTISOL DECREASED [None]
  - FATIGUE [None]
  - PRODUCT SUBSTITUTION ISSUE [None]
  - WHEEZING [None]
